FAERS Safety Report 21691430 (Version 1)
Quarter: 2022Q4

REPORT INFORMATION
  Report Type: Spontaneous
  Country: US (occurrence: US)
  Receive Date: 20221207
  Receipt Date: 20221207
  Transmission Date: 20230112
  Serious: No
  Sender: FDA-Public Use
  Company Number: US-PADAGIS-2022PAD01031

PATIENT

DRUGS (1)
  1. CLINDAMYCIN PHOSPHATE [Suspect]
     Active Substance: CLINDAMYCIN PHOSPHATE
     Indication: Folliculitis
     Dosage: UNK
     Route: 061

REACTIONS (3)
  - Wrong technique in product usage process [Unknown]
  - Device mechanical issue [Unknown]
  - Product use in unapproved indication [Unknown]
